FAERS Safety Report 20834197 (Version 1)
Quarter: 2022Q2

REPORT INFORMATION
  Report Type: Spontaneous
  Country: FR (occurrence: FR)
  Receive Date: 20220516
  Receipt Date: 20220516
  Transmission Date: 20220721
  Serious: Yes (Other)
  Sender: FDA-Public Use
  Company Number: FR-PFM-2022-04455

PATIENT
  Age: 65 Year
  Sex: Female

DRUGS (2)
  1. BINIMETINIB [Suspect]
     Active Substance: BINIMETINIB
     Indication: Malignant melanoma
     Dosage: UNK
     Route: 065
  2. ENCORAFENIB [Suspect]
     Active Substance: ENCORAFENIB
     Indication: Malignant melanoma
     Dosage: UNK
     Route: 065

REACTIONS (6)
  - Hepatotoxicity [Unknown]
  - Uveitis [Unknown]
  - Hypophysitis [Unknown]
  - Diarrhoea [Recovered/Resolved]
  - Iron deficiency anaemia [Unknown]
  - Colitis [Unknown]

NARRATIVE: CASE EVENT DATE: 20200901
